FAERS Safety Report 21595281 (Version 2)
Quarter: 2022Q4

REPORT INFORMATION
  Report Type: Report from Study
  Country: US (occurrence: US)
  Receive Date: 20221115
  Receipt Date: 20221118
  Transmission Date: 20230113
  Serious: No
  Sender: FDA-Public Use
  Company Number: US-ABBVIE-4156695

PATIENT
  Sex: Male

DRUGS (2)
  1. HUMIRA [Suspect]
     Active Substance: ADALIMUMAB
     Indication: Crohn^s disease
     Dosage: CITRATE FREE?FORM STRENGTH: 40 MG
     Route: 058
  2. HUMIRA [Suspect]
     Active Substance: ADALIMUMAB
     Indication: Crohn^s disease

REACTIONS (14)
  - Injection site pain [Recovered/Resolved]
  - Oropharyngeal pain [Recovering/Resolving]
  - Abdominal pain upper [Not Recovered/Not Resolved]
  - Illness [Unknown]
  - Upper respiratory tract congestion [Recovering/Resolving]
  - Diarrhoea [Not Recovered/Not Resolved]
  - Rhinorrhoea [Recovering/Resolving]
  - Injection site bruising [Recovered/Resolved]
  - Frequent bowel movements [Recovering/Resolving]
  - Fear of injection [Recovered/Resolved]
  - Lethargy [Recovering/Resolving]
  - Hair texture abnormal [Unknown]
  - Trichorrhexis [Unknown]
  - Increased upper airway secretion [Recovering/Resolving]

NARRATIVE: CASE EVENT DATE: 20220101
